FAERS Safety Report 25196585 (Version 2)
Quarter: 2025Q2

REPORT INFORMATION
  Report Type: Spontaneous
  Country: US (occurrence: US)
  Receive Date: 20250415
  Receipt Date: 20250604
  Transmission Date: 20250716
  Serious: Yes (Other)
  Sender: ALEXION PHARMACEUTICALS
  Company Number: US-AstraZeneca-CH-00845055AP

PATIENT
  Age: 74 Year

DRUGS (2)
  1. BYDUREON BCISE [Suspect]
     Active Substance: EXENATIDE
     Route: 065
  2. BASAGLAR [Concomitant]
     Active Substance: INSULIN GLARGINE
     Route: 065

REACTIONS (6)
  - Neuropathy peripheral [Unknown]
  - Peripheral swelling [Recovered/Resolved]
  - Device leakage [Unknown]
  - Poor quality device used [Unknown]
  - Liquid product physical issue [Unknown]
  - Incorrect dose administered by device [Unknown]
